FAERS Safety Report 5800585-4 (Version None)
Quarter: 2008Q3

REPORT INFORMATION
  Report Type: 
  Country: None (occurrence: None)
  Receive Date: 20080703
  Receipt Date: 20080623
  Transmission Date: 20090109
  Serious: Yes (Death, Hospitalization, Other)
  Sender: FDA-Public Use
  Company Number: US-BAXTER-2008BH006773

PATIENT
  Age: 57 Year
  Sex: Female

DRUGS (2)
  1. DIANEAL [Suspect]
     Indication: PERITONEAL DIALYSIS
     Dosage: DOSE UNIT:UNKNOWN
     Route: 033
     Dates: start: 20051101, end: 20080323
  2. EXTRANEAL [Suspect]
     Indication: PERITONEAL DIALYSIS
     Dosage: DOSE UNIT:UNKNOWN
     Route: 033
     Dates: start: 20051101, end: 20080323

REACTIONS (11)
  - ARTERIOSCLEROSIS [None]
  - CATHETER RELATED INFECTION [None]
  - CORONARY ARTERY STENOSIS [None]
  - DRY GANGRENE [None]
  - FUNGAL SEPSIS [None]
  - NECROSIS [None]
  - NEUROLOGICAL SYMPTOM [None]
  - PAIN [None]
  - PYREXIA [None]
  - RENAL FAILURE CHRONIC [None]
  - UNRESPONSIVE TO STIMULI [None]
